FAERS Safety Report 16251134 (Version 2)
Quarter: 2020Q3

REPORT INFORMATION
  Report Type: Spontaneous
  Country: US (occurrence: US)
  Receive Date: 20190429
  Receipt Date: 20200917
  Transmission Date: 20201102
  Serious: Yes (Hospitalization, Other)
  Sender: FDA-Public Use
  Company Number: US-JNJFOC-20190431586

PATIENT
  Age: 61 Year
  Sex: Female

DRUGS (3)
  1. XARELTO [Suspect]
     Active Substance: RIVAROXABAN
     Indication: THROMBECTOMY
     Route: 048
     Dates: start: 201601, end: 201702
  2. XARELTO [Suspect]
     Active Substance: RIVAROXABAN
     Indication: THROMBOSIS PROPHYLAXIS
     Route: 048
     Dates: start: 20180120
  3. XARELTO [Suspect]
     Active Substance: RIVAROXABAN
     Indication: THROMBOSIS PROPHYLAXIS
     Dosage: VARYING DOSES OF 15 AND 20 MG
     Route: 048
     Dates: start: 2017, end: 201801

REACTIONS (3)
  - Rectal haemorrhage [Unknown]
  - Wound haemorrhage [Recovered/Resolved]
  - Haemorrhage urinary tract [Unknown]

NARRATIVE: CASE EVENT DATE: 20170410
